FAERS Safety Report 12957681 (Version 1)
Quarter: 2016Q4

REPORT INFORMATION
  Report Type: Spontaneous
  Country: FR (occurrence: FR)
  Receive Date: 20161118
  Receipt Date: 20161118
  Transmission Date: 20170207
  Serious: Yes (Hospitalization)
  Sender: FDA-Public Use
  Company Number: FR-009507513-1611FRA008409

PATIENT
  Age: 87 Year
  Sex: Female

DRUGS (11)
  1. GAVISCON (ALGINIC ACID (+) ALUMINUM HYDROXIDE (+) MAGNESIUM TRISILICAT [Concomitant]
     Active Substance: ALGINIC ACID\ALUMINUM HYDROXIDE\MAGNESIUM TRISILICATE
     Dosage: UNK
  2. LESCOL [Concomitant]
     Active Substance: FLUVASTATIN SODIUM
     Dosage: 1 DF DAILY
  3. UVEDOSE [Concomitant]
     Active Substance: CHOLECALCIFEROL
     Dosage: 100000 IU EVERY THREE MONTHS
  4. DAFALGAN [Concomitant]
     Active Substance: ACETAMINOPHEN
  5. AZOPT [Suspect]
     Active Substance: BRINZOLAMIDE
     Indication: GLAUCOMA SURGERY
     Dosage: 1 GTT, BID
     Route: 047
     Dates: start: 20160909
  6. DIAMOX SEQUELS [Suspect]
     Active Substance: ACETAZOLAMIDE
     Indication: GLAUCOMA SURGERY
     Dosage: 0.5 DF 2X/DAY
     Route: 048
     Dates: start: 20160818
  7. KARDEGIC [Concomitant]
     Active Substance: ASPIRIN LYSINE
     Dosage: 1 DF DAILY
  8. DORZOLAMIDE HYDROCHLORIDE. [Suspect]
     Active Substance: DORZOLAMIDE HYDROCHLORIDE
     Indication: GLAUCOMA SURGERY
     Dosage: 1 GTT, BID
     Route: 047
     Dates: start: 20160818, end: 20160819
  9. SECTRAL [Concomitant]
     Active Substance: ACEBUTOLOL HYDROCHLORIDE
     Dosage: 0.5 DF PER DAY
  10. TEMESTA [Concomitant]
     Active Substance: LORAZEPAM
     Dosage: 1 MG IF NECESSARY
  11. COSOPT [Suspect]
     Active Substance: DORZOLAMIDE HYDROCHLORIDE\TIMOLOL MALEATE
     Indication: GLAUCOMA SURGERY
     Dosage: 1 GTT, BID
     Route: 047
     Dates: start: 20160820

REACTIONS (1)
  - Dyspnoea exertional [Unknown]

NARRATIVE: CASE EVENT DATE: 20160820
